FAERS Safety Report 12485878 (Version 1)
Quarter: 2016Q2

REPORT INFORMATION
  Report Type: Spontaneous
  Country: US (occurrence: US)
  Receive Date: 20160621
  Receipt Date: 20160621
  Transmission Date: 20160815
  Serious: No
  Sender: FDA-Public Use
  Company Number: US-BEH-2016070379

PATIENT
  Age: 67 Year
  Sex: Female
  Weight: 85.71 kg

DRUGS (7)
  1. BERINERT [Suspect]
     Active Substance: HUMAN C1-ESTERASE INHIBITOR
     Indication: HEREDITARY ANGIOEDEMA
     Dosage: 2000 IU, PRN
     Route: 042
     Dates: start: 20150713
  2. EPINEPHRINE. [Concomitant]
     Active Substance: EPINEPHRINE
  3. DIPHENHYDRAMINE. [Concomitant]
     Active Substance: DIPHENHYDRAMINE
  4. MAXIDENE [Concomitant]
  5. ATENOLOL. [Concomitant]
     Active Substance: ATENOLOL
  6. SODIUM CHLORIDE. [Concomitant]
     Active Substance: SODIUM CHLORIDE
  7. PRILOSEC [Concomitant]
     Active Substance: OMEPRAZOLE MAGNESIUM

REACTIONS (1)
  - Sinusitis [Unknown]

NARRATIVE: CASE EVENT DATE: 20151231
